FAERS Safety Report 18388947 (Version 4)
Quarter: 2020Q4

REPORT INFORMATION
  Report Type: Spontaneous
  Country: RO (occurrence: RO)
  Receive Date: 20201015
  Receipt Date: 20201202
  Transmission Date: 20210114
  Serious: Yes (Other)
  Sender: FDA-Public Use
  Company Number: RO-MYLANLABS-2020M1086989

PATIENT
  Age: 19 Year

DRUGS (5)
  1. AMOXICILLIN. [Suspect]
     Active Substance: AMOXICILLIN
     Indication: RHINITIS HYPERTROPHIC
     Dosage: UNK
  2. LEVOFLOXACIN. [Suspect]
     Active Substance: LEVOFLOXACIN
     Indication: SINUSITIS
     Dosage: UNK
     Route: 065
     Dates: start: 201905
  3. AMOXICILLIN. [Suspect]
     Active Substance: AMOXICILLIN
     Indication: SINUSITIS
     Dosage: 1.2 GRAM, BID (BOTH INTRAOPERATIVELY AND 7 DAYS POSTOPERATIVELY)
     Route: 065
     Dates: start: 2019
  4. LEVOFLOXACIN. [Suspect]
     Active Substance: LEVOFLOXACIN
     Indication: RHINITIS HYPERTROPHIC
     Dosage: UNK
  5. AMOXICILLIN. [Suspect]
     Active Substance: AMOXICILLIN
     Dosage: 2.4 GRAM, QD (1.2 GRAM, BID)
     Route: 065

REACTIONS (5)
  - Sinusitis [Recovered/Resolved]
  - Chronic sinusitis [Recovered/Resolved]
  - Sinonasal obstruction [Recovered/Resolved]
  - Drug ineffective [Recovered/Resolved]
  - Rhinitis [Recovered/Resolved]

NARRATIVE: CASE EVENT DATE: 201905
